FAERS Safety Report 8702177 (Version 2)
Quarter: 2012Q4

REPORT INFORMATION
  Report Type: 
  Country: US (occurrence: US)
  Receive Date: 20120803
  Receipt Date: 20121018
  Transmission Date: 20130627
  Serious: Yes (Death)
  Sender: FDA-Public Use
  Company Number: US-JNJFOC-20120800481

PATIENT
  Age: 86 None
  Sex: Female
  Weight: 81.65 kg

DRUGS (3)
  1. RISPERDAL [Suspect]
     Indication: DEMENTIA
     Route: 048
     Dates: start: 2008, end: 20080506
  2. HEART MEDICATION (UNKNOWN) [Concomitant]
     Indication: CARDIAC DISORDER
     Route: 065
  3. NITROGLYCERIN PATCH [Concomitant]
     Indication: CARDIAC DISORDER
     Route: 062

REACTIONS (2)
  - Myocardial infarction [Fatal]
  - Death [Fatal]
